FAERS Safety Report 6815036-0 (Version None)
Quarter: 2010Q2

REPORT INFORMATION
  Report Type: 
  Country: None (occurrence: None)
  Receive Date: 20100630
  Receipt Date: 20100630
  Transmission Date: 20101027
  Serious: No
  Sender: FDA-Public Use
  Company Number: None

PATIENT
  Sex: Female
  Weight: 71.2147 kg

DRUGS (1)
  1. NIASPAN [Suspect]
     Indication: BLOOD CHOLESTEROL ABNORMAL
     Dosage: LOWEST DOSE ONCE A DAY PO ABOUT 2 1/2 MONTHS
     Route: 048
     Dates: start: 20100401, end: 20100615

REACTIONS (5)
  - ABDOMINAL PAIN UPPER [None]
  - BLOOD GLUCOSE INCREASED [None]
  - DIZZINESS [None]
  - FLUSHING [None]
  - VISUAL IMPAIRMENT [None]
